FAERS Safety Report 9346982 (Version 1)
Quarter: 2013Q2

REPORT INFORMATION
  Report Type: Report from Study
  Country: US (occurrence: US)
  Receive Date: 20130613
  Receipt Date: 20130613
  Transmission Date: 20140414
  Serious: Yes (Hospitalization)
  Sender: FDA-Public Use
  Company Number: US-JNJFOC-20130603454

PATIENT
  Age: 65 Year
  Sex: Female

DRUGS (3)
  1. SIMPONI [Suspect]
     Indication: PSORIATIC ARTHROPATHY
     Route: 058
     Dates: start: 201211, end: 201211
  2. ACTONEL [Concomitant]
  3. ASPIRIN [Concomitant]

REACTIONS (6)
  - Convulsion [Recovering/Resolving]
  - Motor dysfunction [Recovering/Resolving]
  - Fall [Unknown]
  - Coma [Unknown]
  - Foot fracture [Unknown]
  - Vomiting [Unknown]
